FAERS Safety Report 16326801 (Version 2)
Quarter: 2019Q3

REPORT INFORMATION
  Report Type: Spontaneous
  Country: US (occurrence: US)
  Receive Date: 20190517
  Receipt Date: 20190723
  Transmission Date: 20191004
  Serious: Yes (Disabling, Other)
  Sender: FDA-Public Use
  Company Number: US-BAYER-2019-097547

PATIENT
  Sex: Female

DRUGS (2)
  1. GADOLINIUM IN UNSPECIFIED DRUG [Suspect]
     Active Substance: GADOLINIUM
     Indication: NUCLEAR MAGNETIC RESONANCE IMAGING
  2. MAGNEVIST [Suspect]
     Active Substance: GADOPENTETATE DIMEGLUMINE
     Indication: NUCLEAR MAGNETIC RESONANCE IMAGING
     Route: 042

REACTIONS (18)
  - Burning sensation [None]
  - Confusional state [None]
  - Arthralgia [None]
  - Rash generalised [None]
  - Emotional distress [None]
  - Gadolinium deposition disease [None]
  - Inflammation [None]
  - Paraesthesia [None]
  - Anxiety [None]
  - Feeling abnormal [None]
  - Fatigue [None]
  - Muscle spasms [None]
  - Asthenia [None]
  - Hypoaesthesia [None]
  - Injury [None]
  - Pain [None]
  - Mass [None]
  - Mobility decreased [None]
